FAERS Safety Report 9057368 (Version 1)
Quarter: 2013Q1

REPORT INFORMATION
  Report Type: Spontaneous
  Country: FR (occurrence: FR)
  Receive Date: 20130204
  Receipt Date: 20130204
  Transmission Date: 20140127
  Serious: Yes (Other)
  Sender: FDA-Public Use
  Company Number: PHHY2013FR008858

PATIENT
  Age: 68 Year
  Sex: Male

DRUGS (2)
  1. ATORVASTATIN [Suspect]
     Indication: MYOCARDIAL ISCHAEMIA
     Dosage: 80 MG, QD
  2. FUSIDIC ACID [Interacting]
     Indication: STAPHYLOCOCCAL INFECTION
     Dosage: 500 MG, TID
     Route: 048

REACTIONS (9)
  - Rhabdomyolysis [Recovering/Resolving]
  - Muscular weakness [Recovering/Resolving]
  - Myalgia [Recovering/Resolving]
  - Chromaturia [Recovering/Resolving]
  - Oedema peripheral [Recovering/Resolving]
  - Pain in extremity [Recovering/Resolving]
  - Dysstasia [Recovering/Resolving]
  - Transaminases increased [Recovered/Resolved]
  - Drug interaction [Unknown]
